FAERS Safety Report 7394456-2 (Version None)
Quarter: 2011Q2

REPORT INFORMATION
  Report Type: 
  Country: None (occurrence: None)
  Receive Date: 20110405
  Receipt Date: 20110329
  Transmission Date: 20111010
  Serious: No
  Sender: FDA-Public Use
  Company Number: US-PFIZER INC-2011071028

PATIENT
  Sex: Female

DRUGS (1)
  1. PRISTIQ [Suspect]
     Dosage: 25 MG, UNK

REACTIONS (4)
  - HYPERHIDROSIS [None]
  - DRUG HYPERSENSITIVITY [None]
  - DIZZINESS [None]
  - SPEECH DISORDER [None]
